FAERS Safety Report 4548044-3 (Version None)
Quarter: 2005Q1

REPORT INFORMATION
  Report Type: 
  Country: None (occurrence: None)
  Receive Date: 20050103
  Receipt Date: 20050103
  Transmission Date: 20050727
  Serious: Yes (Other)
  Sender: FDA-Public Use
  Company Number: None

PATIENT
  Sex: Female
  Weight: 63.5036 kg

DRUGS (3)
  1. METOLAZONE [Suspect]
     Dosage: 5 MG ONCE /PO
     Route: 048
     Dates: start: 20040701
  2. NEURONTIN [Suspect]
     Dosage: 400 MG THREE TIMES
     Dates: start: 20041001
  3. GABAPENTIN [Suspect]

REACTIONS (3)
  - BLOOD PRESSURE INCREASED [None]
  - DRUG EFFECT DECREASED [None]
  - PHARMACEUTICAL PRODUCT COMPLAINT [None]
